FAERS Safety Report 15411379 (Version 1)
Quarter: 2018Q3

REPORT INFORMATION
  Report Type: Spontaneous
  Country: None (occurrence: US)
  Receive Date: 20180921
  Receipt Date: 20180921
  Transmission Date: 20181010
  Serious: No
  Sender: FDA-Public Use
  Company Number: US-RECKITT BENCKISER HEALTHCARE INT LIMITED-RB-82220-2018

PATIENT
  Age: 69 Year
  Sex: Female

DRUGS (1)
  1. MUCINEX MAXIMUM STRENGTH [Suspect]
     Active Substance: GUAIFENESIN
     Indication: COUGH
     Dosage: 1200 MG, BID, 14 TABLETS
     Route: 065
     Dates: start: 20180101, end: 20180108

REACTIONS (1)
  - Drug ineffective [Not Recovered/Not Resolved]
